FAERS Safety Report 7896533-6 (Version None)
Quarter: 2011Q4

REPORT INFORMATION
  Report Type: 
  Country: None (occurrence: None)
  Receive Date: 20111106
  Receipt Date: 20111026
  Transmission Date: 20120403
  Serious: No
  Sender: FDA-Public Use
  Company Number: US-AMGEN-USASP2011043081

PATIENT
  Age: 55 Year
  Sex: Female

DRUGS (2)
  1. ENBREL [Suspect]
     Indication: RHEUMATOID ARTHRITIS
     Dosage: 50 MG, QWK
     Dates: start: 20110530, end: 20110822
  2. ENBREL [Suspect]
     Indication: OSTEOARTHRITIS

REACTIONS (12)
  - THERAPEUTIC RESPONSE DECREASED [None]
  - RHEUMATOID ARTHRITIS [None]
  - CONSTIPATION [None]
  - ABDOMINAL PAIN UPPER [None]
  - PYREXIA [None]
  - NASOPHARYNGITIS [None]
  - NAUSEA [None]
  - GAIT DISTURBANCE [None]
  - HYPERHIDROSIS [None]
  - FATIGUE [None]
  - TENDERNESS [None]
  - COUGH [None]
